FAERS Safety Report 19467180 (Version 1)
Quarter: 2021Q2

REPORT INFORMATION
  Report Type: Other
  Country: CN (occurrence: CN)
  Receive Date: 20210628
  Receipt Date: 20210628
  Transmission Date: 20210717
  Serious: Yes (Other)
  Sender: FDA-Public Use
  Company Number: CN-ROCHE-2858688

PATIENT

DRUGS (1)
  1. CAPECITABINE. [Suspect]
     Active Substance: CAPECITABINE
     Indication: GASTRIC CANCER
     Dosage: RALLY IN TWO DIVIDED DOSES, AFTER BREAKFAST AND DINNER, ON DAYS 1 ? 14
     Route: 048

REACTIONS (1)
  - Renal impairment [Unknown]
